FAERS Safety Report 10239735 (Version 1)
Quarter: 2014Q2

REPORT INFORMATION
  Report Type: Spontaneous
  Country: FR (occurrence: FR)
  Receive Date: 20140616
  Receipt Date: 20140616
  Transmission Date: 20141212
  Serious: Yes (Other)
  Sender: FDA-Public Use
  Company Number: FR-TEVA-488246ISR

PATIENT
  Age: 53 Year
  Sex: Female

DRUGS (1)
  1. COPAXONE [Suspect]
     Dates: start: 20130322

REACTIONS (4)
  - Multiple sclerosis relapse [Recovered/Resolved]
  - Hemiplegia [Recovered/Resolved]
  - Injection site pain [Unknown]
  - Drug dose omission [Unknown]
